FAERS Safety Report 13653982 (Version 3)
Quarter: 2017Q4

REPORT INFORMATION
  Report Type: Report from Study
  Country: FR (occurrence: FR)
  Receive Date: 20170614
  Receipt Date: 20171211
  Transmission Date: 20180320
  Serious: Yes (Death, Hospitalization, Other)
  Sender: FDA-Public Use
  Company Number: FR-SEATTLE GENETICS-2017SGN00373

PATIENT
  Age: 57 Year
  Sex: Male
  Weight: 61 kg

DRUGS (5)
  1. BRENTUXIMAB VEDOTIN [Suspect]
     Active Substance: BRENTUXIMAB VEDOTIN
     Dosage: 100 MG, UNK
     Route: 065
     Dates: start: 20161214
  2. BRENTUXIMAB VEDOTIN [Suspect]
     Active Substance: BRENTUXIMAB VEDOTIN
     Indication: HODGKIN^S DISEASE
     Dosage: 130 MG, UNK
     Route: 065
     Dates: start: 20160511
  3. BRENTUXIMAB VEDOTIN [Suspect]
     Active Substance: BRENTUXIMAB VEDOTIN
     Dosage: 100 MG, UNK
     Route: 065
     Dates: start: 20170104
  4. NIVOLUMAB [Suspect]
     Active Substance: NIVOLUMAB
     Indication: LYMPHOMA
     Dosage: UNK
     Route: 042
     Dates: start: 20170222, end: 20170322
  5. BENDAMUSTINE [Concomitant]
     Active Substance: BENDAMUSTINE
     Indication: HODGKIN^S DISEASE
     Dosage: UNK
     Route: 065
     Dates: start: 20170104

REACTIONS (16)
  - Tachycardia [Fatal]
  - Small intestinal obstruction [Recovered/Resolved]
  - Weight increased [Unknown]
  - Sepsis [Fatal]
  - Hodgkin^s disease [Fatal]
  - Off label use [Not Recovered/Not Resolved]
  - General physical health deterioration [Unknown]
  - Gastroenteritis [Unknown]
  - Pyrexia [Unknown]
  - Respiratory distress [Fatal]
  - Infection [Unknown]
  - Hyperthermia [Fatal]
  - Chills [Unknown]
  - Bronchial obstruction [Fatal]
  - Anaemia [Unknown]
  - Fatigue [Unknown]

NARRATIVE: CASE EVENT DATE: 20161214
